FAERS Safety Report 9647617 (Version 1)
Quarter: 2013Q4

REPORT INFORMATION
  Report Type: Spontaneous
  Country: US (occurrence: US)
  Receive Date: 20131028
  Receipt Date: 20131028
  Transmission Date: 20140711
  Serious: Yes (Other)
  Sender: FDA-Public Use
  Company Number: US-PAR PHARMACEUTICAL, INC-2013SCPR007736

PATIENT
  Sex: 0

DRUGS (1)
  1. ZOLPIDEM TARTRATE ER [Suspect]
     Indication: INSOMNIA
     Dosage: 5 MG, HS
     Route: 048

REACTIONS (2)
  - Galactorrhoea [Recovered/Resolved]
  - Breast tenderness [Recovered/Resolved]
